FAERS Safety Report 19642423 (Version 2)
Quarter: 2021Q3

REPORT INFORMATION
  Report Type: Other
  Country: US (occurrence: US)
  Receive Date: 20210731
  Receipt Date: 20210924
  Transmission Date: 20211014
  Serious: Yes (Other)
  Sender: FDA-Public Use
  Company Number: US-ROCHE-2881158

PATIENT
  Sex: Female

DRUGS (19)
  1. TYLENOL [Concomitant]
     Active Substance: ACETAMINOPHEN
  2. KLOR?CON [Concomitant]
     Active Substance: POTASSIUM CHLORIDE
     Route: 048
  3. ELIQUIS [Concomitant]
     Active Substance: APIXABAN
  4. VOLTAREN [Concomitant]
     Active Substance: DICLOFENAC SODIUM
     Dosage: APPLY 2 GM TOPICALLY 4 TIMES DAILY.
  5. FOLIC ACID. [Concomitant]
     Active Substance: FOLIC ACID
  6. PRINIVIL [Concomitant]
     Active Substance: LISINOPRIL
  7. DELTASONE [Concomitant]
     Active Substance: PREDNISONE
     Route: 048
  8. ACTEMRA [Suspect]
     Active Substance: TOCILIZUMAB
     Indication: GIANT CELL ARTERITIS
  9. SYMBICORT [Concomitant]
     Active Substance: BUDESONIDE\FORMOTEROL FUMARATE DIHYDRATE
     Dosage: 160?4.5 MCG/ACT
  10. VITAMIN D [ERGOCALCIFEROL] [Concomitant]
     Active Substance: ERGOCALCIFEROL
  11. ACIDOPHILUS [Concomitant]
     Active Substance: LACTOBACILLUS ACIDOPHILUS
  12. ROXICODONE [Concomitant]
     Active Substance: OXYCODONE HYDROCHLORIDE
     Route: 048
  13. BUMEX [Concomitant]
     Active Substance: BUMETANIDE
     Dosage: 0.5 TABLETS BY MOUTH EVERY OTHER DAY
  14. MAG?OX [Concomitant]
     Active Substance: MAGNESIUM OXIDE
  15. ACTEMRA [Suspect]
     Active Substance: TOCILIZUMAB
     Indication: OSTEOPOROSIS
     Dosage: INJECT 162MG (0.9 MLS) SUBCUTANEOUSLY EVERY 14 DAYS (QUANTITY 6 SYRINGES)
     Route: 058
  16. FOSAMAX [Concomitant]
     Active Substance: ALENDRONATE SODIUM
  17. TOPROL XL [Concomitant]
     Active Substance: METOPROLOL SUCCINATE
  18. ZESTRIL [Concomitant]
     Active Substance: LISINOPRIL
  19. CALCIUM CARBONATE. [Concomitant]
     Active Substance: CALCIUM CARBONATE
     Dosage: 600?400 MG

REACTIONS (1)
  - Ankle fracture [Unknown]
